FAERS Safety Report 25382709 (Version 3)
Quarter: 2025Q3

REPORT INFORMATION
  Report Type: Spontaneous
  Country: US (occurrence: US)
  Receive Date: 20250602
  Receipt Date: 20250702
  Transmission Date: 20251021
  Serious: No
  Sender: ABBVIE
  Company Number: US-ABBVIE-6302925

PATIENT
  Age: 69 Year
  Sex: Female

DRUGS (1)
  1. ESTRADIOL [Suspect]
     Active Substance: ESTRADIOL
     Indication: Product used for unknown indication
     Route: 067
     Dates: start: 2010

REACTIONS (5)
  - Burning sensation [Unknown]
  - Swelling [Unknown]
  - Product tampering [Unknown]
  - Drug hypersensitivity [Unknown]
  - Skin irritation [Unknown]
